FAERS Safety Report 12763116 (Version 2)
Quarter: 2016Q4

REPORT INFORMATION
  Report Type: Spontaneous
  Country: US (occurrence: US)
  Receive Date: 20160920
  Receipt Date: 20161004
  Transmission Date: 20170207
  Serious: No
  Sender: FDA-Public Use
  Company Number: US-PFIZER INC-2016438224

PATIENT
  Age: 57 Year
  Sex: Female

DRUGS (1)
  1. MARCAINE [Suspect]
     Active Substance: BUPIVACAINE HYDROCHLORIDE
     Indication: KNEE ARTHROPLASTY
     Dosage: 1.6 ML, UNK

REACTIONS (2)
  - Drug ineffective [Unknown]
  - Discomfort [Unknown]

NARRATIVE: CASE EVENT DATE: 20160914
